FAERS Safety Report 12384314 (Version 1)
Quarter: 2016Q2

REPORT INFORMATION
  Report Type: Spontaneous
  Country: US (occurrence: None)
  Receive Date: 20160518
  Receipt Date: 20160518
  Transmission Date: 20160815
  Serious: No
  Sender: FDA-Public Use
  Company Number: None

PATIENT
  Sex: Male

DRUGS (1)
  1. LIPITOR [Suspect]
     Active Substance: ATORVASTATIN CALCIUM

REACTIONS (6)
  - Epilepsy [None]
  - Hypertension [None]
  - Cerebral disorder [None]
  - Foot fracture [None]
  - Hernia repair [None]
  - Eye disorder [None]
